FAERS Safety Report 13104659 (Version 1)
Quarter: 2017Q1

REPORT INFORMATION
  Report Type: Report from Study
  Country: US (occurrence: US)
  Receive Date: 20170111
  Receipt Date: 20170111
  Transmission Date: 20170428
  Serious: Yes (Life-Threatening)
  Sender: FDA-Public Use
  Company Number: US-PFIZER INC-2017011142

PATIENT

DRUGS (3)
  1. ERLOTINIB [Suspect]
     Active Substance: ERLOTINIB
     Indication: METASTATIC NEOPLASM
     Dosage: 150 MG, DAILY
     Route: 048
  2. DEXAMETHASONE. [Concomitant]
     Active Substance: DEXAMETHASONE
     Indication: METASTATIC NEOPLASM
     Dosage: 4 MG, UNK (DAY BEFORE, OF AND AFTER INFUSION)
     Route: 048
  3. DOCETAXEL. [Suspect]
     Active Substance: DOCETAXEL
     Indication: METASTATIC NEOPLASM
     Dosage: 25 MG/M2, CYCLIC
     Route: 041

REACTIONS (2)
  - Small intestinal perforation [Unknown]
  - Enterocolitis [Unknown]
